FAERS Safety Report 9214624 (Version 2)
Quarter: 2013Q2

REPORT INFORMATION
  Report Type: Report from Study
  Country: US (occurrence: US)
  Receive Date: 20130405
  Receipt Date: 20130518
  Transmission Date: 20140414
  Serious: Yes (Hospitalization)
  Sender: FDA-Public Use
  Company Number: US-ROCHE-1209193

PATIENT
  Age: 65 Year
  Sex: Female
  Weight: 60 kg

DRUGS (3)
  1. PEG-INTERFERON ALFA 2A [Suspect]
     Indication: CHRONIC HEPATITIS C
     Dosage: DATE OF MOST RECENT DOSE ON 28/FEB/2013 AT 180 MG
     Route: 065
     Dates: start: 20130118
  2. RIBAVIRIN [Suspect]
     Indication: CHRONIC HEPATITIS C
     Dosage: DATE OF MOST RECENT DOSE ON 01/MAR/2013 AT DOSE 600 MG
     Route: 065
     Dates: start: 20130118
  3. TELAPREVIR [Suspect]
     Indication: CHRONIC HEPATITIS C
     Dosage: DATE OF MOST RECENT DOSE ON 28/FEB/2013 AT DOSE 2250 MG
     Route: 065
     Dates: start: 20130118

REACTIONS (1)
  - Gastritis [Recovered/Resolved]
